FAERS Safety Report 21403456 (Version 1)
Quarter: 2022Q4

REPORT INFORMATION
  Report Type: Report from Study
  Country: US (occurrence: US)
  Receive Date: 20221003
  Receipt Date: 20221003
  Transmission Date: 20230113
  Serious: Yes (Other)
  Sender: FDA-Public Use
  Company Number: US-UCBSA-2022056728

PATIENT
  Age: 20 Year
  Sex: Male
  Weight: 95 kg

DRUGS (5)
  1. BRIVARACETAM [Suspect]
     Active Substance: BRIVARACETAM
     Indication: Seizure
     Dosage: 100 MILLIGRAM, 2X/DAY (BID)
     Route: 048
  2. CIMETIDINE [Concomitant]
     Active Substance: CIMETIDINE
     Indication: Product used for unknown indication
  3. ONFI [Concomitant]
     Active Substance: CLOBAZAM
     Indication: Product used for unknown indication
  4. KETOROLAC [Concomitant]
     Active Substance: KETOROLAC TROMETHAMINE
     Indication: Product used for unknown indication
  5. METHYLPREDNISOLONE [Concomitant]
     Active Substance: METHYLPREDNISOLONE
     Indication: Product used for unknown indication

REACTIONS (10)
  - Seizure [Unknown]
  - Insomnia [Unknown]
  - Tachyphrenia [Unknown]
  - Obstructive sleep apnoea syndrome [Unknown]
  - Scalloped tongue [Unknown]
  - Erythema [Unknown]
  - Fatigue [Recovering/Resolving]
  - Sleep disorder [Unknown]
  - Gastrooesophageal reflux disease [Unknown]
  - Dry mouth [Unknown]

NARRATIVE: CASE EVENT DATE: 20181212
